FAERS Safety Report 10402413 (Version 2)
Quarter: 2014Q3

REPORT INFORMATION
  Report Type: Spontaneous
  Country: US (occurrence: US)
  Receive Date: 20140822
  Receipt Date: 20140910
  Transmission Date: 20150326
  Serious: No
  Sender: FDA-Public Use
  Company Number: US-PFIZER INC-2014230424

PATIENT
  Age: 73 Year
  Sex: Female
  Weight: 90.7 kg

DRUGS (6)
  1. CARVEDILOL. [Concomitant]
     Active Substance: CARVEDILOL
     Indication: HYPERTENSION
     Dosage: 6.25 MG, 2X/DAY
  2. PROGESTERONE. [Suspect]
     Active Substance: PROGESTERONE
     Indication: SUPPLEMENTATION THERAPY
     Dosage: 100 MG, DAILY
     Dates: start: 2013
  3. PROGESTERONE. [Suspect]
     Active Substance: PROGESTERONE
     Dosage: UNK
     Dates: start: 201402
  4. PREMARIN [Concomitant]
     Active Substance: ESTROGENS, CONJUGATED
     Indication: MENOPAUSAL SYMPTOMS
     Dosage: UNK
     Dates: start: 1987, end: 2014
  5. FENOFIBRIC ACID. [Concomitant]
     Active Substance: FENOFIBRIC ACID
     Indication: BLOOD TRIGLYCERIDES ABNORMAL
     Dosage: 135 MG, DAILY
  6. PROGESTERONE. [Suspect]
     Active Substance: PROGESTERONE
     Dosage: UNK
     Dates: start: 201401

REACTIONS (2)
  - Breast swelling [Recovering/Resolving]
  - Breast tenderness [Recovering/Resolving]

NARRATIVE: CASE EVENT DATE: 201301
